FAERS Safety Report 24565646 (Version 2)
Quarter: 2025Q1

REPORT INFORMATION
  Report Type: Spontaneous
  Country: US (occurrence: US)
  Receive Date: 20241030
  Receipt Date: 20250102
  Transmission Date: 20250409
  Serious: No
  Sender: LEO PHARM
  Company Number: US-LEO Pharma-374697

PATIENT
  Age: 26 Year
  Sex: Female

DRUGS (1)
  1. ADBRY [Suspect]
     Active Substance: TRALOKINUMAB-LDRM
     Indication: Dermatitis allergic
     Dosage: TREATMENT IS ONGOING
     Route: 058

REACTIONS (2)
  - Eczema [Unknown]
  - Drug ineffective [Unknown]
